FAERS Safety Report 5110556-1 (Version None)
Quarter: 2006Q3

REPORT INFORMATION
  Report Type: 
  Country: None (occurrence: None)
  Receive Date: 20060731
  Receipt Date: 20060614
  Transmission Date: 20061208
  Serious: Yes (Hospitalization)
  Sender: FDA-Public Use
  Company Number: 2006PV015571

PATIENT
  Age: 41 Year
  Sex: Female
  Weight: 122.6 kg

DRUGS (13)
  1. BYETTA [Suspect]
     Indication: DIABETES MELLITUS NON-INSULIN-DEPENDENT
     Dosage: SEE IMAGE
     Route: 058
     Dates: start: 20060320, end: 20060101
  2. BYETTA [Suspect]
     Indication: DIABETES MELLITUS NON-INSULIN-DEPENDENT
     Dosage: SEE IMAGE
     Route: 058
     Dates: start: 20051101, end: 20060106
  3. BYETTA [Suspect]
     Indication: DIABETES MELLITUS NON-INSULIN-DEPENDENT
     Dosage: SEE IMAGE
     Route: 058
     Dates: start: 20060606, end: 20060606
  4. METFORMIN HCL [Concomitant]
  5. GLIPIZIDE [Concomitant]
  6. DIOVAN HCT [Concomitant]
  7. EFFEXOR XR [Concomitant]
  8. LIPITOR [Concomitant]
  9. NORVASC [Concomitant]
  10. ADVAIR DISKUS 100/50 [Concomitant]
  11. ACTOS [Concomitant]
  12. LANTUS [Concomitant]
  13. HUMALOG [Concomitant]

REACTIONS (5)
  - ABDOMINAL PAIN [None]
  - DIZZINESS [None]
  - NAUSEA [None]
  - URTICARIA [None]
  - VOMITING [None]
